FAERS Safety Report 12877122 (Version 1)
Quarter: 2016Q4

REPORT INFORMATION
  Report Type: Spontaneous
  Country: US (occurrence: US)
  Receive Date: 20161023
  Receipt Date: 20161023
  Transmission Date: 20170207
  Serious: Yes (Disabling, Other)
  Sender: FDA-Public Use
  Company Number: None

PATIENT
  Age: 48 Year
  Sex: Male
  Weight: 90 kg

DRUGS (1)
  1. PRED ACETATE GENERIC [Suspect]
     Active Substance: PREDNISONE ACETATE
     Indication: POSTOPERATIVE CARE
     Route: 047
     Dates: start: 20160823, end: 20161018

REACTIONS (11)
  - Eye pain [None]
  - Visual impairment [None]
  - Photophobia [None]
  - Ophthalmological examination abnormal [None]
  - Glare [None]
  - Refraction disorder [None]
  - Product substitution issue [None]
  - Visual acuity reduced [None]
  - Halo vision [None]
  - Frustration tolerance decreased [None]
  - Corneal opacity [None]

NARRATIVE: CASE EVENT DATE: 20160823
